FAERS Safety Report 6116716-5 (Version None)
Quarter: 2009Q1

REPORT INFORMATION
  Report Type: 
  Country: None (occurrence: None)
  Receive Date: 20090314
  Receipt Date: 20081222
  Transmission Date: 20090719
  Serious: No
  Sender: FDA-Public Use
  Company Number: US-ABBOTT-08P-163-0494591-00

PATIENT
  Sex: Female
  Weight: 81.266 kg

DRUGS (10)
  1. HUMIRA [Suspect]
     Indication: RHEUMATOID ARTHRITIS
     Route: 058
     Dates: start: 20081115
  2. PREDNISONE [Concomitant]
     Indication: DRUG USE FOR UNKNOWN INDICATION
     Dates: start: 20070101
  3. ZOCOR [Concomitant]
     Indication: BLOOD CHOLESTEROL
     Dates: start: 20070101
  4. FLEXERIL [Concomitant]
     Indication: DRUG USE FOR UNKNOWN INDICATION
  5. LYRICA [Concomitant]
     Indication: FIBROMYALGIA
     Dosage: 1
  6. ARAVA [Concomitant]
     Indication: DRUG USE FOR UNKNOWN INDICATION
  7. FOLIC ACID [Concomitant]
     Indication: DRUG USE FOR UNKNOWN INDICATION
  8. HYDROCHLOROTHIAZIDE [Concomitant]
     Indication: DRUG USE FOR UNKNOWN INDICATION
  9. CYMBALTA [Concomitant]
     Indication: DEPRESSION
  10. VICOPROFEN [Concomitant]
     Indication: PAIN

REACTIONS (3)
  - CHEST PAIN [None]
  - DRUG DELIVERY SYSTEM MALFUNCTION [None]
  - INCORRECT DOSE ADMINISTERED [None]
